FAERS Safety Report 13912507 (Version 5)
Quarter: 2017Q4

REPORT INFORMATION
  Report Type: Spontaneous
  Country: US (occurrence: US)
  Receive Date: 20170828
  Receipt Date: 20171121
  Transmission Date: 20180320
  Serious: Yes (Hospitalization, Other)
  Sender: FDA-Public Use
  Company Number: US-PFIZER INC-2017365393

PATIENT
  Age: 54 Year
  Sex: Female
  Weight: 55 kg

DRUGS (3)
  1. CORTEF [Suspect]
     Active Substance: HYDROCORTISONE
     Dosage: 5 MG, UNK
  2. CORTEF [Suspect]
     Active Substance: HYDROCORTISONE
     Dosage: 40 MG, DAILY (20MG AM, 10MG 2:00PM, 10MG 10:00PM)
     Dates: start: 2004
  3. HYDROCORTISONE. [Suspect]
     Active Substance: HYDROCORTISONE
     Indication: ADDISON^S DISEASE
     Dosage: 20MG IN THE MORNING AND IN THE AFTERNOON TAKE 10MG AND 10MG AT BEDTIME
     Route: 048
     Dates: end: 2017

REACTIONS (9)
  - Arrhythmia [Not Recovered/Not Resolved]
  - Headache [Unknown]
  - Gluten sensitivity [Not Recovered/Not Resolved]
  - Disease recurrence [Not Recovered/Not Resolved]
  - Chest pain [Not Recovered/Not Resolved]
  - Dyspnoea [Unknown]
  - Nausea [Unknown]
  - Product physical issue [Unknown]
  - Swelling face [Unknown]
